FAERS Safety Report 7050885-8 (Version None)
Quarter: 2010Q4

REPORT INFORMATION
  Report Type: 
  Country: None (occurrence: None)
  Receive Date: 20101019
  Receipt Date: 20101011
  Transmission Date: 20110411
  Serious: Yes (Other)
  Sender: FDA-Public Use
  Company Number: 167156

PATIENT
  Age: 54 Year
  Sex: Female

DRUGS (3)
  1. AVONEX [Suspect]
     Indication: MULTIPLE SCLEROSIS
     Route: 030
     Dates: start: 20020101, end: 20021001
  2. AVONEX [Suspect]
     Route: 030
     Dates: start: 20021201
  3. CARDIAC MEDICATION (NOS) [Concomitant]
     Indication: SUPRAVENTRICULAR TACHYCARDIA

REACTIONS (2)
  - CARDIAC FAILURE CONGESTIVE [None]
  - INFLUENZA LIKE ILLNESS [None]
